FAERS Safety Report 26082289 (Version 1)
Quarter: 2025Q4

REPORT INFORMATION
  Report Type: Other
  Country: GB (occurrence: GB)
  Receive Date: 20251124
  Receipt Date: 20251124
  Transmission Date: 20260118
  Serious: Yes (Other)
  Sender: GLENMARK
  Company Number: GB-MHRA-WEBRADR-202511091350370840-BDMNT

PATIENT
  Age: 59 Year
  Sex: Female
  Weight: 110 kg

DRUGS (4)
  1. MONTELUKAST SODIUM [Suspect]
     Active Substance: MONTELUKAST SODIUM
     Indication: Mast cell activation syndrome
     Dosage: 1 MILLIGRAM (TABLET)
     Route: 048
     Dates: start: 20251007, end: 20251024
  2. FEXOFENADINE [Concomitant]
     Active Substance: FEXOFENADINE HYDROCHLORIDE
     Indication: Urticaria
     Dosage: UNK (TOOK IN THE MORNING)
     Route: 065
  3. FEXOFENADINE [Concomitant]
     Active Substance: FEXOFENADINE HYDROCHLORIDE
     Dosage: UNK, BID (TWICE A DAY)
     Route: 065
  4. ZOLMITRIPTAN [Concomitant]
     Active Substance: ZOLMITRIPTAN
     Indication: Migraine
     Dosage: UNK
     Route: 065

REACTIONS (3)
  - Thermal burn [Recovering/Resolving]
  - Condition aggravated [Unknown]
  - Eating disorder [Unknown]

NARRATIVE: CASE EVENT DATE: 20251011
